FAERS Safety Report 18775454 (Version 1)
Quarter: 2021Q1

REPORT INFORMATION
  Report Type: Spontaneous
  Country: US (occurrence: US)
  Receive Date: 20210122
  Receipt Date: 20210122
  Transmission Date: 20210419
  Serious: No
  Sender: FDA-Public Use
  Company Number: US-TEVA-2021-US-1870100

PATIENT
  Age: 65 Year
  Sex: Male

DRUGS (1)
  1. DILTIAZEM. [Suspect]
     Active Substance: DILTIAZEM
     Indication: BLOOD PRESSURE MEASUREMENT
     Dosage: FREQUENCY WAS NOT REPORTED
     Route: 065

REACTIONS (2)
  - Product substitution issue [Unknown]
  - Therapeutic product effect incomplete [Unknown]
